FAERS Safety Report 16485204 (Version 1)
Quarter: 2019Q2

REPORT INFORMATION
  Report Type: Report from Study
  Country: CA (occurrence: CA)
  Receive Date: 20190627
  Receipt Date: 20190627
  Transmission Date: 20190711
  Serious: Yes (Other)
  Sender: FDA-Public Use
  Company Number: CA-JNJFOC-20190618012

PATIENT
  Age: 27 Year
  Weight: 70 kg

DRUGS (1)
  1. REMICADE [Suspect]
     Active Substance: INFLIXIMAB
     Indication: COLITIS ULCERATIVE
     Route: 042
     Dates: start: 20120301

REACTIONS (6)
  - Product use issue [Unknown]
  - Gastrooesophageal reflux disease [Not Recovered/Not Resolved]
  - Intestinal resection [Unknown]
  - Weight decreased [Unknown]
  - Cytology abnormal [Unknown]
  - Off label use [Unknown]

NARRATIVE: CASE EVENT DATE: 20120301
